FAERS Safety Report 19124381 (Version 1)
Quarter: 2021Q2

REPORT INFORMATION
  Report Type: Spontaneous
  Country: US (occurrence: US)
  Receive Date: 20210412
  Receipt Date: 20210412
  Transmission Date: 20210717
  Serious: Yes (Hospitalization)
  Sender: FDA-Public Use
  Company Number: US-UNITED THERAPEUTICS-UNT-2020-015920

PATIENT
  Sex: Female

DRUGS (55)
  1. UNITUXIN [Suspect]
     Active Substance: DINUTUXIMAB
     Dosage: UNK, CYCLICAL (CYCLE 5) (AT 100% DOSE)
     Route: 041
     Dates: start: 201910
  2. UNITUXIN [Suspect]
     Active Substance: DINUTUXIMAB
     Dosage: 0.75 MG, CYCLICAL (CYCLE 3)
     Route: 050
     Dates: start: 20201019, end: 20201023
  3. UNITUXIN [Suspect]
     Active Substance: DINUTUXIMAB
     Dosage: 1 MG, CYCLICAL (CYCLE 6)
     Route: 050
     Dates: start: 20201221, end: 20201224
  4. ETOPOSIDE. [Suspect]
     Active Substance: ETOPOSIDE
     Dosage: 0.5 MG, CYCLICAL (CYCLE 5)
     Route: 050
     Dates: start: 20201130, end: 20201204
  5. ETOPOSIDE. [Suspect]
     Active Substance: ETOPOSIDE
     Dosage: 0.5 MG, CYCLICAL (CYCLE 6)
     Route: 050
     Dates: start: 20201221, end: 20201224
  6. TEMODAR [Suspect]
     Active Substance: TEMOZOLOMIDE
     Dosage: 50 MG, CYCLICAL (CYCLE 8)
     Route: 048
     Dates: start: 20210201, end: 20210205
  7. TEMODAR [Suspect]
     Active Substance: TEMOZOLOMIDE
     Dosage: 50 MG, CYCLICAL (CYCLE 10)
     Route: 048
     Dates: start: 20210315, end: 20210319
  8. IRINOTECAN HYDROCHLORIDE. [Suspect]
     Active Substance: IRINOTECAN HYDROCHLORIDE
     Dosage: UNK, CYCLICAL (CYCLE 2)
     Route: 065
     Dates: start: 20181217
  9. ONDANSETRON [Concomitant]
     Active Substance: ONDANSETRON
     Indication: NAUSEA
     Dosage: 2.5 ML (2 MG), TID (PRN)
     Route: 048
  10. SULFAMETHOXAZOLE AND TRIMETHOPRIM [Concomitant]
     Active Substance: SULFAMETHOXAZOLE\TRIMETHOPRIM
     Indication: PRODUCT USED FOR UNKNOWN INDICATION
     Dosage: 3.8 ML (30.4 MG), BID SASU
     Route: 048
  11. UNITUXIN [Suspect]
     Active Substance: DINUTUXIMAB
     Dosage: UNK, CYCLICAL (CYCLE 2)
     Route: 041
     Dates: start: 20181217
  12. ETOPOSIDE. [Suspect]
     Active Substance: ETOPOSIDE
     Dosage: 0.5 MG, CYCLICAL (CYCLE 3)
     Route: 050
     Dates: start: 20201019, end: 20201023
  13. ETOPOSIDE. [Suspect]
     Active Substance: ETOPOSIDE
     Dosage: 0.5 MG, CYCLICAL (CYCLE 7)
     Route: 050
     Dates: start: 20210111, end: 20210116
  14. DEXAMETHASONE. [Concomitant]
     Active Substance: DEXAMETHASONE
     Dosage: 3 MG, BID
     Route: 065
  15. DEXAMETHASONE. [Concomitant]
     Active Substance: DEXAMETHASONE
     Dosage: 2 MG, BID
     Route: 065
  16. TRAMETINIB [Concomitant]
     Active Substance: TRAMETINIB
     Indication: PRODUCT USED FOR UNKNOWN INDICATION
     Dosage: 0.5 MG, QD
     Route: 048
  17. UNITUXIN [Suspect]
     Active Substance: DINUTUXIMAB
     Dosage: 1.5 MG, CYCLICAL (CYCLE 7)
     Route: 050
     Dates: start: 20210111, end: 20210116
  18. UNITUXIN [Suspect]
     Active Substance: DINUTUXIMAB
     Dosage: 5 MG, CYCLICAL (CYCLE 10)
     Route: 050
     Dates: start: 20210315, end: 20210319
  19. ETOPOSIDE. [Suspect]
     Active Substance: ETOPOSIDE
     Dosage: 0.5 MG, CYCLICAL (CYCLE 4)
     Route: 050
     Dates: start: 20201109, end: 20201113
  20. ETOPOSIDE. [Suspect]
     Active Substance: ETOPOSIDE
     Dosage: 0.5 MG, CYCLICAL (CYCLE 10)
     Route: 050
     Dates: start: 20210315, end: 20210319
  21. TEMODAR [Suspect]
     Active Substance: TEMOZOLOMIDE
     Dosage: 50 MG, CYCLICAL (CYCLE 9)
     Route: 048
     Dates: start: 20210222, end: 20210226
  22. GM?CSF [Suspect]
     Active Substance: GRANULOCYTE-MACROPHAGE COLONY-STIMULATING FACTOR
     Indication: NEUROBLASTOMA
     Dosage: UNK, CYCLICAL (CYCLE 3)
     Route: 065
     Dates: start: 20190812
  23. FAMOTIDINE. [Concomitant]
     Active Substance: FAMOTIDINE
     Indication: PRODUCT USED FOR UNKNOWN INDICATION
     Dosage: 0.65 ML (5.2 MG), Q12H
     Route: 048
  24. UNITUXIN [Suspect]
     Active Substance: DINUTUXIMAB
     Indication: NEUROBLASTOMA
     Dosage: UNK, CYCLICAL (CYCLE 1)
     Route: 041
     Dates: start: 20181126
  25. UNITUXIN [Suspect]
     Active Substance: DINUTUXIMAB
     Dosage: UNK, CYCLICAL (CYCLE 3) (AT 50% DOSE)
     Route: 041
     Dates: start: 20190812
  26. UNITUXIN [Suspect]
     Active Substance: DINUTUXIMAB
     Dosage: UNK, CYCLICAL (CYCLE 4) (AT 75% DOSE)
     Route: 041
     Dates: start: 201909
  27. UNITUXIN [Suspect]
     Active Substance: DINUTUXIMAB
     Dosage: 3.5 MG, CYCLICAL (CYCLE 9)
     Route: 050
     Dates: start: 20210222, end: 20210226
  28. ETOPOSIDE. [Suspect]
     Active Substance: ETOPOSIDE
     Indication: NEUROBLASTOMA
     Dosage: 0.5 MG, CYCLICAL (CYCLE 2)
     Route: 050
     Dates: start: 20200928, end: 20201002
  29. TEMODAR [Suspect]
     Active Substance: TEMOZOLOMIDE
     Dosage: 45 MG, CYCLICAL (CYCLE 5)
     Route: 048
     Dates: start: 20201130, end: 20201204
  30. TEMODAR [Suspect]
     Active Substance: TEMOZOLOMIDE
     Dosage: 45 MG, CYCLICAL (CYCLE 7)
     Route: 048
     Dates: start: 20210111, end: 20210116
  31. DEXAMETHASONE. [Concomitant]
     Active Substance: DEXAMETHASONE
     Indication: PRODUCT USED FOR UNKNOWN INDICATION
     Dosage: 5 MG, BID
     Route: 065
  32. UNITUXIN [Suspect]
     Active Substance: DINUTUXIMAB
     Dosage: 0.5 MG, CYCLICAL (CYCLE 1)
     Route: 050
     Dates: start: 20200901, end: 20200904
  33. ETOPOSIDE. [Suspect]
     Active Substance: ETOPOSIDE
     Dosage: 0.5 MG, CYCLICAL (CYCLE 8)
     Route: 050
     Dates: start: 20210201, end: 20210205
  34. TEMODAR [Suspect]
     Active Substance: TEMOZOLOMIDE
     Indication: NEUROBLASTOMA
     Dosage: UNK, CONTINUING (CYCLE 1)
     Route: 065
     Dates: start: 20181126
  35. TEMODAR [Suspect]
     Active Substance: TEMOZOLOMIDE
     Dosage: 45 MG, CYCLICAL (CYCLE 3)
     Route: 048
     Dates: start: 20201019, end: 20201023
  36. UNITUXIN [Suspect]
     Active Substance: DINUTUXIMAB
     Dosage: 0.5 MG, CYCLICAL (CYCLE 2)
     Route: 050
     Dates: start: 20200928, end: 20201002
  37. UNITUXIN [Suspect]
     Active Substance: DINUTUXIMAB
     Dosage: 1 MG, CYCLICAL (CYCLE 4)
     Route: 050
     Dates: start: 20201109, end: 20201113
  38. UNITUXIN [Suspect]
     Active Substance: DINUTUXIMAB
     Dosage: 2.5 MG, CYCLICAL (CYCLE 8)
     Route: 050
     Dates: start: 20210201, end: 20210205
  39. ETOPOSIDE. [Suspect]
     Active Substance: ETOPOSIDE
     Dosage: 0.5 MG, CYCLICAL (CYCLE 9)
     Route: 050
     Dates: start: 20210222, end: 20210226
  40. GM?CSF [Suspect]
     Active Substance: GRANULOCYTE-MACROPHAGE COLONY-STIMULATING FACTOR
     Dosage: UNK, CYCLICAL (CYCLE 4)
     Route: 065
     Dates: start: 201909
  41. DEXAMETHASONE. [Concomitant]
     Active Substance: DEXAMETHASONE
     Dosage: 4 MG, BID
     Route: 065
  42. UNITUXIN [Suspect]
     Active Substance: DINUTUXIMAB
     Dosage: 1 MG, CYCLICAL (CYCLE 5)
     Route: 050
     Dates: start: 20201130, end: 20201204
  43. TEMODAR [Suspect]
     Active Substance: TEMOZOLOMIDE
     Dosage: 45 MG, CYCLICAL (CYCLE 6)
     Route: 048
     Dates: start: 20201221, end: 20201224
  44. DISULFIRAM. [Suspect]
     Active Substance: DISULFIRAM
     Dosage: 250 MG, QD
     Route: 048
     Dates: start: 20210322
  45. DISULFIRAM. [Suspect]
     Active Substance: DISULFIRAM
     Dosage: 125 MG, QD
     Route: 048
     Dates: start: 20210329
  46. CHOLECALCIFEROL [Concomitant]
     Active Substance: CHOLECALCIFEROL
     Indication: PRODUCT USED FOR UNKNOWN INDICATION
     Dosage: 400 INTL_UNITS, QDAY (10 MCG/ML)
     Route: 048
  47. UNITUXIN [Suspect]
     Active Substance: DINUTUXIMAB
     Dosage: UNK, CYCLICAL (CYCLE 1)
     Route: 041
     Dates: start: 20190527
  48. UNITUXIN [Suspect]
     Active Substance: DINUTUXIMAB
     Dosage: UNK, CYCLICAL (CYCLE 2) AFTER HOME INFUSION IL2
     Route: 041
     Dates: start: 20190702
  49. TEMODAR [Suspect]
     Active Substance: TEMOZOLOMIDE
     Dosage: UNK, CONTINUING (CYCLE 2)
     Route: 065
     Dates: start: 20181217
  50. TEMODAR [Suspect]
     Active Substance: TEMOZOLOMIDE
     Dosage: 35 MG, CYCLICAL (CYCLE 2)
     Route: 048
     Dates: start: 20200928, end: 20201002
  51. TEMODAR [Suspect]
     Active Substance: TEMOZOLOMIDE
     Dosage: 45 MG, CYCLICAL (CYCLE 4)
     Route: 048
     Dates: start: 20201109, end: 20201113
  52. IRINOTECAN HYDROCHLORIDE. [Suspect]
     Active Substance: IRINOTECAN HYDROCHLORIDE
     Indication: NEUROBLASTOMA
     Dosage: UNK, CYCLICAL (CYCLE 1)
     Route: 065
     Dates: start: 20181126
  53. GM?CSF [Suspect]
     Active Substance: GRANULOCYTE-MACROPHAGE COLONY-STIMULATING FACTOR
     Dosage: UNK, CYCLICAL (CYCLE 5)
     Route: 065
     Dates: start: 201910
  54. DISULFIRAM. [Suspect]
     Active Substance: DISULFIRAM
     Indication: PRODUCT USED FOR UNKNOWN INDICATION
     Dosage: 125 MG, QD
     Route: 048
     Dates: start: 20210308
  55. DEXAMETHASONE. [Concomitant]
     Active Substance: DEXAMETHASONE
     Dosage: 1 MG, BID
     Route: 065

REACTIONS (20)
  - Hypokinesia [Unknown]
  - Malaise [Unknown]
  - Vitamin D deficiency [Unknown]
  - Serum ferritin increased [Unknown]
  - Urine output decreased [Unknown]
  - Blood lactate dehydrogenase decreased [Unknown]
  - Blood urea nitrogen/creatinine ratio increased [Unknown]
  - Osteopenia [Unknown]
  - Conjunctivitis [Unknown]
  - Protein albumin ratio decreased [Unknown]
  - Fatigue [Unknown]
  - Hordeolum [Recovering/Resolving]
  - Dysstasia [Unknown]
  - Asthenia [Unknown]
  - Thyroxine decreased [Recovered/Resolved]
  - Tachycardia [Unknown]
  - Headache [Unknown]
  - Blood thyroid stimulating hormone increased [Unknown]
  - Tri-iodothyronine decreased [Unknown]
  - Product use issue [Unknown]

NARRATIVE: CASE EVENT DATE: 201911
